FAERS Safety Report 10432708 (Version 2)
Quarter: 2014Q3

REPORT INFORMATION
  Report Type: Spontaneous
  Country: IT (occurrence: IT)
  Receive Date: 20140905
  Receipt Date: 20140926
  Transmission Date: 20150326
  Serious: Yes (Other)
  Sender: FDA-Public Use
  Company Number: PHHY2014IT110029

PATIENT
  Age: 36 Year
  Sex: Male

DRUGS (4)
  1. TOLEP [Suspect]
     Active Substance: OXCARBAZEPINE
     Indication: DRUG ABUSE
     Dosage: 10 DF (300MG)
     Route: 048
     Dates: start: 20140802, end: 20140802
  2. PARACETAMOL [Suspect]
     Active Substance: ACETAMINOPHEN
     Indication: DRUG ABUSE
     Dosage: 3 DF (1G)
     Route: 048
     Dates: start: 20140802, end: 20140802
  3. COCAINE [Concomitant]
     Active Substance: COCAINE
     Dosage: UNK UKN, UNK
     Route: 055
  4. DAPAROX (PAROXETINE MESILATE) [Suspect]
     Active Substance: PAROXETINE MESYLATE
     Indication: DRUG ABUSE
     Dosage: 2 DF, UNK
     Route: 048
     Dates: start: 20140802, end: 20140802

REACTIONS (2)
  - Hyperhidrosis [Recovering/Resolving]
  - Sopor [Recovering/Resolving]

NARRATIVE: CASE EVENT DATE: 20140802
